FAERS Safety Report 9717512 (Version 3)
Quarter: 2015Q3

REPORT INFORMATION
  Report Type: Spontaneous
  Country: US (occurrence: US)
  Receive Date: 20131127
  Receipt Date: 20150803
  Transmission Date: 20151125
  Serious: No
  Sender: FDA-Public Use
  Company Number: US-GILEAD-2009-0019811

PATIENT
  Age: 76 Year
  Sex: Male
  Weight: 80.74 kg

DRUGS (6)
  1. LETAIRIS [Suspect]
     Active Substance: AMBRISENTAN
     Indication: PULMONARY ARTERIAL HYPERTENSION
     Dates: start: 20090112, end: 20090123
  2. XOPENEX [Concomitant]
     Active Substance: LEVALBUTEROL HYDROCHLORIDE
  3. LASIX [Concomitant]
     Active Substance: FUROSEMIDE
  4. LETAIRIS [Suspect]
     Active Substance: AMBRISENTAN
     Route: 048
     Dates: start: 20071113
  5. COREG [Concomitant]
     Active Substance: CARVEDILOL
  6. PRILOSEC [Concomitant]
     Active Substance: OMEPRAZOLE MAGNESIUM

REACTIONS (7)
  - Peripheral swelling [Unknown]
  - Oedema [Unknown]
  - Oxygen saturation decreased [Recovered/Resolved]
  - Obstructive airways disorder [Unknown]
  - Dyspnoea [Unknown]
  - Paranasal sinus hypersecretion [Unknown]
  - Lung disorder [Recovered/Resolved]
